FAERS Safety Report 12079447 (Version 1)
Quarter: 2016Q1

REPORT INFORMATION
  Report Type: Spontaneous
  Country: ZA (occurrence: ZA)
  Receive Date: 20160216
  Receipt Date: 20160216
  Transmission Date: 20160526
  Serious: Yes (Other)
  Sender: FDA-Public Use
  Company Number: ZA-JNJFOC-20160211299

PATIENT
  Sex: Female

DRUGS (2)
  1. RIPSERIDAL QUICKLET [Concomitant]
     Indication: PRODUCT USED FOR UNKNOWN INDICATION
     Route: 048
  2. DUROGESIC [Suspect]
     Active Substance: FENTANYL
     Indication: LUNG NEOPLASM MALIGNANT
     Route: 062

REACTIONS (1)
  - Delirium [Unknown]
